FAERS Safety Report 7990103-7 (Version None)
Quarter: 2011Q4

REPORT INFORMATION
  Report Type: 
  Country: None (occurrence: None)
  Receive Date: 20111219
  Receipt Date: 20110818
  Transmission Date: 20120403
  Serious: No
  Sender: FDA-Public Use
  Company Number: US-ASTRAZENECA-2011SE49616

PATIENT
  Sex: Female

DRUGS (3)
  1. LISINOPRIL [Concomitant]
     Indication: BLOOD PRESSURE
  2. PROGESTERONE [Concomitant]
  3. CRESTOR [Suspect]
     Indication: BLOOD CHOLESTEROL
     Route: 048

REACTIONS (6)
  - HYPOTENSION [None]
  - OSTEOPOROSIS [None]
  - THERAPEUTIC RESPONSE INCREASED [None]
  - MALAISE [None]
  - MYOPATHY [None]
  - ALCOHOLIC [None]
